FAERS Safety Report 23325098 (Version 1)
Quarter: 2023Q4

REPORT INFORMATION
  Report Type: Spontaneous
  Country: US (occurrence: US)
  Receive Date: 20231221
  Receipt Date: 20231221
  Transmission Date: 20240110
  Serious: Yes (Other)
  Sender: FDA-Public Use
  Company Number: US-MLMSERVICE-20231208-4107802-1

PATIENT
  Age: 15 Year
  Sex: Male

DRUGS (9)
  1. LORAZEPAM [Suspect]
     Active Substance: LORAZEPAM
     Indication: Catatonia
  2. ZIPRASIDONE [Concomitant]
     Active Substance: ZIPRASIDONE
     Indication: Schizophrenia
     Dosage: (PRIOR-TO-ADMISSION HOME REGIMEN )
  3. ZIPRASIDONE [Concomitant]
     Active Substance: ZIPRASIDONE
     Dosage: DECREASED DAY 1
  4. CLOZAPINE [Concomitant]
     Active Substance: CLOZAPINE
     Indication: Schizophrenia
     Dosage: 200 MG IN THE MORNING, 100 MG IN THE AFTERNOON, 250 MG IN THE EVENING (PRIOR-TO-ADMISSION HOME REGIM
  5. CLOZAPINE [Concomitant]
     Active Substance: CLOZAPINE
     Dosage: 200 MG IN THE MORNING, OTHER DOSES HELD, DAY 1
  6. CLOZAPINE [Concomitant]
     Active Substance: CLOZAPINE
     Dosage: 200 MG IN THE MORNING, 100 MG IN THE AFTERNOON, 250 MG IN THE EVENING (PRIOR-TO-ADMISSION HOME REGIM
  7. CLOZAPINE [Concomitant]
     Active Substance: CLOZAPINE
     Dosage: 200 MG IN THE MORNING, 100 MG IN THE AFTERNOON, 250 MG IN THE EVENING (PRIOR-TO-ADMISSION HOME REGIM
  8. FLUOXETINE [Concomitant]
     Active Substance: FLUOXETINE HYDROCHLORIDE
     Indication: Schizophrenia
     Dosage: 40 MG IN THE MORNING AND 20 MG IN THE EVENING PRIOR-TO-ADMISSION HOME REGIMEN )
  9. FLUOXETINE [Concomitant]
     Active Substance: FLUOXETINE HYDROCHLORIDE
     Dosage: 40 MG IN THE MORNING AND 20 MG IN THE EVENING (PRIOR-TO-ADMISSION HOME REGIMEN )

REACTIONS (1)
  - Sedation complication [Unknown]
